FAERS Safety Report 5802318-4 (Version None)
Quarter: 2008Q3

REPORT INFORMATION
  Report Type: 
  Country: None (occurrence: None)
  Receive Date: 20080707
  Receipt Date: 20080630
  Transmission Date: 20090109
  Serious: Yes (Hospitalization)
  Sender: FDA-Public Use
  Company Number: FR-SANOFI-SYNTHELABO-F01200801100

PATIENT
  Sex: Female
  Weight: 50 kg

DRUGS (4)
  1. RITUXIMAB [Suspect]
     Route: 042
     Dates: start: 20080418, end: 20080418
  2. ENZASTAURIN [Suspect]
     Route: 048
     Dates: start: 20080417, end: 20080417
  3. OXALIPLATIN [Suspect]
     Route: 042
     Dates: start: 20080418, end: 20080418
  4. GEMCITABINE HCL [Suspect]
     Route: 042

REACTIONS (2)
  - PLATELET COUNT DECREASED [None]
  - RENAL HAEMORRHAGE [None]
